FAERS Safety Report 20920222 (Version 1)
Quarter: 2022Q2

REPORT INFORMATION
  Report Type: Spontaneous
  Country: US (occurrence: None)
  Receive Date: 20220606
  Receipt Date: 20220606
  Transmission Date: 20220721
  Serious: Yes (Hospitalization)
  Sender: FDA-Public Use
  Company Number: None

PATIENT
  Age: 71 Year
  Sex: Male
  Weight: 119.61 kg

DRUGS (11)
  1. POSACONAZOLE [Suspect]
     Active Substance: POSACONAZOLE
     Indication: Myelodysplastic syndrome
     Dosage: FREQUENCY : DAILY;?
     Route: 048
     Dates: start: 20211020
  2. ACYCLOVIR [Concomitant]
  3. AMLODIPINE [Concomitant]
  4. ELIQUIS [Concomitant]
  5. FERROUS SULFATE [Concomitant]
  6. GLIMEPIRIDE [Concomitant]
  7. LEVAQUIN [Concomitant]
  8. METFORMIN [Concomitant]
  9. NOXAFIL [Concomitant]
  10. TAMSULOSIN [Concomitant]
  11. VITAMIN B12 [Concomitant]

REACTIONS (1)
  - Infection [None]
